FAERS Safety Report 21947762 (Version 1)
Quarter: 2023Q1

REPORT INFORMATION
  Report Type: Other
  Country: PT (occurrence: None)
  Receive Date: 20230203
  Receipt Date: 20230203
  Transmission Date: 20230418
  Serious: Yes (Other)
  Sender: FDA-Public Use
  Company Number: PT-ROCHE-3277048

PATIENT
  Age: 56 Year
  Sex: Male

DRUGS (9)
  1. CLONAZEPAM [Suspect]
     Active Substance: CLONAZEPAM
     Indication: Stiff person syndrome
     Route: 065
  2. BACLOFEN [Suspect]
     Active Substance: BACLOFEN
     Indication: Stiff person syndrome
     Route: 065
  3. PROPOFOL [Concomitant]
     Active Substance: PROPOFOL
  4. KETAMINE [Concomitant]
     Active Substance: KETAMINE
  5. FENTANYL [Concomitant]
     Active Substance: FENTANYL
  6. ROCURONIUM [Concomitant]
     Active Substance: ROCURONIUM BROMIDE
  7. MORPHINE [Concomitant]
     Active Substance: MORPHINE
     Route: 040
  8. DROPERIDOL [Concomitant]
     Active Substance: DROPERIDOL
  9. SUGAMMADEX [Concomitant]
     Active Substance: SUGAMMADEX

REACTIONS (4)
  - Subcapsular splenic haematoma [Unknown]
  - Haemoperitoneum [Unknown]
  - Fall [Unknown]
  - Off label use [Unknown]
